FAERS Safety Report 13415006 (Version 1)
Quarter: 2017Q2

REPORT INFORMATION
  Report Type: Spontaneous
  Country: US (occurrence: US)
  Receive Date: 20170406
  Receipt Date: 20170406
  Transmission Date: 20170830
  Serious: Yes (Disabling)
  Sender: FDA-Public Use
  Company Number: US-SA-2017SA056901

PATIENT
  Age: 30 Year
  Sex: Female

DRUGS (2)
  1. LANTUS [Suspect]
     Active Substance: INSULIN GLARGINE
     Indication: TYPE 1 DIABETES MELLITUS
     Route: 065
  2. APIDRA [Suspect]
     Active Substance: INSULIN GLULISINE
     Indication: TYPE 1 DIABETES MELLITUS
     Dosage: DOSE 1 U PER 15 GM CARB?START DATE 10-15 YRS
     Route: 065

REACTIONS (4)
  - Pancreatitis chronic [Unknown]
  - Chronic kidney disease [Unknown]
  - Blood glucose increased [Unknown]
  - Extra dose administered [Unknown]
